FAERS Safety Report 6015576-0 (Version None)
Quarter: 2008Q4

REPORT INFORMATION
  Report Type: 
  Country: None (occurrence: None)
  Receive Date: 20081216
  Receipt Date: 20071023
  Transmission Date: 20090506
  Serious: Yes (Other)
  Sender: FDA-Public Use
  Company Number: HQWYE292624SEP07

PATIENT
  Age: 40 Year
  Sex: Female
  Weight: 53.57 kg

DRUGS (3)
  1. EFFEXOR XR [Suspect]
     Indication: ANXIETY
     Dosage: 75 MG 1X PER 1 DAY, ORAL ; 37.5 MG 1X PER 1 DAY, ORAL
     Route: 048
     Dates: start: 20070905, end: 20070911
  2. EFFEXOR XR [Suspect]
     Indication: ANXIETY
     Dosage: 75 MG 1X PER 1 DAY, ORAL ; 37.5 MG 1X PER 1 DAY, ORAL
     Route: 048
     Dates: start: 20070912
  3. TOPROL-XL [Concomitant]

REACTIONS (1)
  - BURNING SENSATION [None]
